FAERS Safety Report 6727959-1 (Version None)
Quarter: 2010Q2

REPORT INFORMATION
  Report Type: 
  Country: None (occurrence: None)
  Receive Date: 20100517
  Receipt Date: 20100505
  Transmission Date: 20101027
  Serious: Yes (Other)
  Sender: FDA-Public Use
  Company Number: FR-SANOFI-AVENTIS-2010SA025830

PATIENT
  Age: 62 Year
  Sex: Male

DRUGS (7)
  1. CLOPIDOGREL WINTHROP [Suspect]
     Indication: CARDIAC DISORDER
     Route: 048
     Dates: start: 20091201, end: 20091201
  2. NITRODERM [Concomitant]
     Indication: DRUG USE FOR UNKNOWN INDICATION
     Route: 062
  3. RAMIPRIL [Concomitant]
     Indication: DRUG USE FOR UNKNOWN INDICATION
  4. SECTRAL [Concomitant]
     Indication: DRUG USE FOR UNKNOWN INDICATION
  5. FELODIPINE [Concomitant]
     Indication: DRUG USE FOR UNKNOWN INDICATION
  6. PRAVASTATIN [Concomitant]
     Indication: DRUG USE FOR UNKNOWN INDICATION
  7. ESOMEPRAZOLE [Concomitant]
     Indication: DRUG USE FOR UNKNOWN INDICATION

REACTIONS (2)
  - HEADACHE [None]
  - HYPERTENSION [None]
